FAERS Safety Report 24604425 (Version 1)
Quarter: 2024Q4

REPORT INFORMATION
  Report Type: Spontaneous
  Country: US (occurrence: US)
  Receive Date: 20241111
  Receipt Date: 20241111
  Transmission Date: 20250115
  Serious: No
  Sender: DR REDDYS
  Company Number: US-DRL-USA-SPO/USA/24/0016181

PATIENT
  Age: 67 Year
  Sex: Male

DRUGS (1)
  1. FLUOROURACIL [Suspect]
     Active Substance: FLUOROURACIL
     Indication: Actinic keratosis
     Dosage: FLUOROURACIL CREAM, USP, 5% DRL?USING IT FOR APPROXIMATELY 10 TO 12 DAYS
     Route: 061
     Dates: start: 20241018, end: 20241028

REACTIONS (1)
  - Inflammation [Unknown]
